FAERS Safety Report 4307436-8 (Version None)
Quarter: 2004Q1

REPORT INFORMATION
  Report Type: 
  Country: None (occurrence: None)
  Receive Date: 20040226
  Receipt Date: 20040213
  Transmission Date: 20041129
  Serious: No
  Sender: FDA-Public Use
  Company Number: 2004AP00662

PATIENT
  Age: 28 Year
  Sex: Female
  Weight: 49 kg

DRUGS (18)
  1. DIPRIVAN [Suspect]
     Indication: GENERAL ANAESTHESIA
     Dosage: 524 MG DAILY IV
     Route: 042
     Dates: start: 20040203, end: 20040203
  2. XYLOCAINE [Suspect]
     Indication: INDUCTION OF ANAESTHESIA
     Dosage: 50 MG DAILY
     Dates: start: 20040203, end: 20040203
  3. ANAPEINE [Suspect]
     Indication: EPIDURAL ANAESTHESIA
     Dosage: 112.5 MG DAILY ED
     Route: 008
     Dates: start: 20040203, end: 20040206
  4. ANAPEINE [Suspect]
     Indication: POSTOPERATIVE ANALGESIA
     Dosage: 112.5 MG DAILY ED
     Route: 008
     Dates: start: 20040203, end: 20040206
  5. ANAPEINE [Suspect]
     Indication: EPIDURAL ANAESTHESIA
     Dosage: 600 MG DAILY ED
     Route: 008
     Dates: start: 20040204, end: 20040206
  6. ANAPEINE [Suspect]
     Indication: POSTOPERATIVE ANALGESIA
     Dosage: 600 MG DAILY ED
     Route: 008
     Dates: start: 20040204, end: 20040206
  7. FLUMARIN [Suspect]
     Dosage: 2 GTT DAILY
     Dates: start: 20040203, end: 20040205
  8. DROLEPTAN [Suspect]
     Indication: EPIDURAL ANAESTHESIA
     Dosage: 3 ML DAILY ED
     Route: 008
     Dates: start: 20040203, end: 20040206
  9. MUSCULAX [Suspect]
     Indication: RELAXATION THERAPY
     Dosage: 8 MG DAILY
     Dates: start: 20040203, end: 20040203
  10. ATAQUICK [Concomitant]
  11. ATROPINE SULFATE [Concomitant]
  12. NEOSTIGMINE   PHARMACIA [Concomitant]
  13. MORPHINE [Concomitant]
  14. FENTANEST [Concomitant]
  15. TRANSAMIN [Concomitant]
  16. ADONA [Concomitant]
  17. GASTER [Concomitant]
  18. MIDAZOLAM HCL [Concomitant]

REACTIONS (6)
  - ALANINE AMINOTRANSFERASE INCREASED [None]
  - ASPARTATE AMINOTRANSFERASE INCREASED [None]
  - BACK PAIN [None]
  - BLOOD LACTATE DEHYDROGENASE INCREASED [None]
  - HEPATIC FUNCTION ABNORMAL [None]
  - MALAISE [None]
